FAERS Safety Report 5528730-9 (Version None)
Quarter: 2007Q4

REPORT INFORMATION
  Report Type: 
  Country: None (occurrence: None)
  Receive Date: 20071113
  Receipt Date: 20070719
  Transmission Date: 20080405
  Serious: Yes (Other)
  Sender: FDA-Public Use
  Company Number: 200715239US

PATIENT
  Age: 68 Year
  Sex: Female

DRUGS (15)
  1. APIDRA [Suspect]
     Indication: TYPE 1 DIABETES MELLITUS
     Dates: start: 20060101, end: 20060101
  2. APIDRA [Suspect]
     Indication: TYPE 1 DIABETES MELLITUS
     Dosage: INJ
     Route: 042
     Dates: start: 20070705
  3. OPTICLIK [Suspect]
     Indication: TYPE 1 DIABETES MELLITUS
     Dates: start: 20060101, end: 20060101
  4. OPTICLIK [Suspect]
     Indication: TYPE 1 DIABETES MELLITUS
     Dates: start: 20070705
  5. INSULIN DETEMIR (LEVEMIR) [Concomitant]
  6. LAMICTAL [Concomitant]
  7. DULOXETINE HYDROCHLORIDE (CYMBALTA) [Concomitant]
  8. LORAZEPAM [Concomitant]
  9. DEXMETHYLPHENIDATE HYDROCHLORIDE (FOCALIN) [Concomitant]
  10. ISOSORBIDE MONONITRATE [Concomitant]
  11. ACETYLSALICYLIC ACID SRT [Concomitant]
  12. LEVOTHYROXINE SODIUM [Concomitant]
  13. AVAPRO [Concomitant]
  14. CYANOCOBALAMIN (VITAMIN B12 AMINO) [Concomitant]
  15. BIOTIN [Concomitant]

REACTIONS (1)
  - HYPOGLYCAEMIA [None]
